FAERS Safety Report 8305125-6 (Version None)
Quarter: 2012Q2

REPORT INFORMATION
  Report Type: 
  Country: None (occurrence: None)
  Receive Date: 20120423
  Receipt Date: 20120412
  Transmission Date: 20120825
  Serious: Yes (Hospitalization)
  Sender: FDA-Public Use
  Company Number: DE-ASTRAZENECA-2012SE24499

PATIENT
  Age: 72 Year
  Sex: Female

DRUGS (5)
  1. ATACAND [Suspect]
     Route: 048
     Dates: start: 20120101
  2. HYDROCHLOROTHIAZIDE [Concomitant]
  3. RANITIDINE HCL [Concomitant]
  4. ATACAND [Suspect]
     Indication: HYPERTENSION
     Route: 048
     Dates: start: 20050101
  5. ASPIRIN [Concomitant]

REACTIONS (2)
  - DRUG INEFFECTIVE [None]
  - HYPERTENSION [None]
